FAERS Safety Report 9852352 (Version 1)
Quarter: 2014Q1

REPORT INFORMATION
  Report Type: Spontaneous
  Country: US (occurrence: None)
  Receive Date: 20140128
  Receipt Date: 20140128
  Transmission Date: 20141002
  Serious: No
  Sender: FDA-Public Use
  Company Number: None

PATIENT
  Sex: 0

DRUGS (1)
  1. PREMARIN VAGINAL CREAM [Suspect]
     Indication: VULVOVAGINAL DRYNESS
     Dosage: 1/2 GRAM INTRAVINALLY EVERY 72 HRS. INTRAVAGINALLY
     Route: 067
     Dates: start: 20121213, end: 20121222

REACTIONS (1)
  - Bloody discharge [None]
